FAERS Safety Report 4606817-2 (Version None)
Quarter: 2005Q1

REPORT INFORMATION
  Report Type: 
  Country: None (occurrence: None)
  Receive Date: 20050310
  Receipt Date: 20050226
  Transmission Date: 20050727
  Serious: Yes (Hospitalization, Other)
  Sender: FDA-Public Use
  Company Number: 2005002103

PATIENT
  Age: 74 Year
  Sex: Female
  Weight: 87.5442 kg

DRUGS (12)
  1. BEXTRA [Suspect]
     Indication: PAIN
     Dosage: (10 MG, 1 IN 1 D), ORAL
     Route: 048
     Dates: end: 20041222
  2. AMLODIPINE BESYLATE [Concomitant]
  3. HYDROXYCHLOROQUINE SULFATE [Concomitant]
  4. ESCITALOPRAM (ESCITALOPRAM) [Concomitant]
  5. CLONAZEPAM [Concomitant]
  6. NORTRIPTYLINE HCL [Concomitant]
  7. LANSOPRAZOLE [Concomitant]
  8. ALENDRONATE SODIUM [Concomitant]
  9. ASCORBIC ACID [Concomitant]
  10. GLUCOSAMINE W/CHONDROITIN SULFATES (ASCORBIC ACID, CHONDROITIN SULFATE [Concomitant]
  11. ACETAMINOPHEN [Concomitant]
  12. FUROSEMIDE [Concomitant]

REACTIONS (40)
  - ANTINUCLEAR ANTIBODY POSITIVE [None]
  - BACK PAIN [None]
  - BLADDER PROLAPSE [None]
  - CARDIAC MURMUR [None]
  - COLONIC POLYP [None]
  - CONSTIPATION [None]
  - CYSTOCELE [None]
  - DEPRESSION [None]
  - DIABETES MELLITUS [None]
  - DIARRHOEA [None]
  - DIASTOLIC DYSFUNCTION [None]
  - DRY EYE [None]
  - DRY MOUTH [None]
  - EXOSTOSIS [None]
  - FIBROMYALGIA [None]
  - FRACTURED SACRUM [None]
  - GAIT DISTURBANCE [None]
  - GASTROOESOPHAGEAL REFLUX DISEASE [None]
  - HYPERCHOLESTEROLAEMIA [None]
  - HYPERTENSION [None]
  - INTERVERTEBRAL DISC DEGENERATION [None]
  - INTERVERTEBRAL DISC PROTRUSION [None]
  - LOBAR PNEUMONIA [None]
  - MUSCULOSKELETAL DISCOMFORT [None]
  - MUSCULOSKELETAL STIFFNESS [None]
  - NODAL OSTEOARTHRITIS [None]
  - NODULE [None]
  - OBESITY [None]
  - OSTEOARTHRITIS [None]
  - RECTAL CRAMPS [None]
  - RECTOCELE [None]
  - SCAR [None]
  - SJOGREN'S SYNDROME [None]
  - SKIN CHAPPED [None]
  - SLEEP DISORDER [None]
  - SPINAL COLUMN STENOSIS [None]
  - SPINAL OSTEOARTHRITIS [None]
  - SURGICAL PROCEDURE REPEATED [None]
  - SYNOVIAL CYST [None]
  - URINARY TRACT INFECTION [None]
